FAERS Safety Report 19706593 (Version 1)
Quarter: 2021Q3

REPORT INFORMATION
  Report Type: Spontaneous
  Country: US (occurrence: US)
  Receive Date: 20210816
  Receipt Date: 20210816
  Transmission Date: 20211014
  Serious: Yes (Hospitalization)
  Sender: FDA-Public Use
  Company Number: None

PATIENT
  Age: 84 Year
  Sex: Male

DRUGS (1)
  1. ABIRATERONE TAB 500MG [Suspect]
     Active Substance: ABIRATERONE
     Route: 048
     Dates: start: 202107

REACTIONS (5)
  - Recurrent cancer [None]
  - Pain [None]
  - Depression [None]
  - Fatigue [None]
  - Bone cancer [None]

NARRATIVE: CASE EVENT DATE: 20210716
